FAERS Safety Report 25622500 (Version 1)
Quarter: 2025Q3

REPORT INFORMATION
  Report Type: Spontaneous
  Country: CN (occurrence: CN)
  Receive Date: 20250730
  Receipt Date: 20250730
  Transmission Date: 20251020
  Serious: Yes (Hospitalization)
  Sender: PFIZER
  Company Number: CN-PFIZER INC-PV202500090347

PATIENT
  Age: 77 Year
  Sex: Female
  Weight: 40 kg

DRUGS (5)
  1. LINEZOLID [Suspect]
     Active Substance: LINEZOLID
     Indication: Pneumonia
     Dosage: 600 MG, 2X/DAY
     Route: 048
     Dates: start: 20250629, end: 20250702
  2. LINEZOLID [Suspect]
     Active Substance: LINEZOLID
     Indication: Pneumonia
     Dosage: 600 MG, 2X/DAY
     Route: 041
     Dates: start: 20250702, end: 20250707
  3. INDOBUFEN [Concomitant]
     Active Substance: INDOBUFEN
     Indication: Antiplatelet therapy
     Dosage: 0.1 G, 2X/DAY
     Route: 048
     Dates: start: 20250629, end: 20250704
  4. CLOPIDOGREL BISULFATE [Concomitant]
     Active Substance: CLOPIDOGREL BISULFATE
     Indication: Antiplatelet therapy
     Dosage: 75 MG, 1X/DAY
     Route: 048
     Dates: start: 20250629, end: 20250704
  5. HEPARIN CALCIUM [Concomitant]
     Active Substance: HEPARIN CALCIUM
     Indication: Anticoagulant therapy
     Dosage: 3000 IU, 1X/DAY
     Route: 058
     Dates: start: 20250629, end: 20250704

REACTIONS (4)
  - Platelet count decreased [Recovered/Resolved]
  - Skin disorder [Recovering/Resolving]
  - Epistaxis [Recovered/Resolved]
  - Therapeutic product effect incomplete [Unknown]

NARRATIVE: CASE EVENT DATE: 20250702
